FAERS Safety Report 10193930 (Version 1)
Quarter: 2014Q2

REPORT INFORMATION
  Report Type: Spontaneous
  Country: US (occurrence: US)
  Receive Date: 20140524
  Receipt Date: 20140524
  Transmission Date: 20141212
  Serious: No
  Sender: FDA-Public Use
  Company Number: US-SANOFI-AVENTIS-2013SA046274

PATIENT
  Age: 56 Year
  Sex: Female
  Weight: 65.32 kg

DRUGS (16)
  1. SOLOSTAR [Suspect]
     Indication: TYPE 2 DIABETES MELLITUS
     Dates: start: 20050102, end: 201305
  2. SOLOSTAR [Suspect]
     Indication: TYPE 2 DIABETES MELLITUS
     Dates: start: 201305
  3. LANTUS SOLOSTAR [Suspect]
     Indication: TYPE 2 DIABETES MELLITUS
     Dosage: DOSE:32 UNIT(S)
     Route: 051
     Dates: start: 20050102, end: 201305
  4. LANTUS SOLOSTAR [Suspect]
     Indication: TYPE 2 DIABETES MELLITUS
     Dates: start: 201305
  5. LISINOPRIL [Concomitant]
     Indication: HYPERTENSION
  6. NEURONTIN [Concomitant]
     Indication: DIABETIC NEUROPATHY
  7. AMITRIPTYLINE [Concomitant]
     Indication: SLEEP DISORDER
  8. POTASSIUM [Concomitant]
     Indication: CARDIAC FAILURE CONGESTIVE
  9. LEXAPRO [Concomitant]
     Indication: DEPRESSION
  10. COREG [Concomitant]
     Indication: CARDIAC FAILURE CONGESTIVE
  11. HUMULIN R [Concomitant]
     Indication: DIABETES MELLITUS
     Dosage: 24/1 BU
  12. NEXIUM [Concomitant]
     Indication: GASTROOESOPHAGEAL REFLUX DISEASE
  13. WARFARIN [Concomitant]
     Indication: HYPERTENSION
     Dosage: 1 TIME
  14. ASPIRIN [Concomitant]
     Indication: HYPERTENSION
  15. PERCOCET [Concomitant]
     Indication: PAIN
  16. PRAVASTATIN [Concomitant]
     Indication: BLOOD CHOLESTEROL

REACTIONS (2)
  - Injection site bruising [Unknown]
  - Blood glucose increased [Not Recovered/Not Resolved]
